FAERS Safety Report 8414378-5 (Version None)
Quarter: 2012Q2

REPORT INFORMATION
  Report Type: 
  Country: None (occurrence: None)
  Receive Date: 20120605
  Receipt Date: 20120525
  Transmission Date: 20120825
  Serious: Yes (Hospitalization)
  Sender: FDA-Public Use
  Company Number: US-BAXTER-2012BAX002746

PATIENT
  Sex: Female

DRUGS (1)
  1. DIANEAL [Suspect]
     Indication: PERITONEAL DIALYSIS
     Route: 033

REACTIONS (6)
  - BACTERIAL TEST POSITIVE [None]
  - PERITONITIS [None]
  - PANCREATITIS [None]
  - UNEVALUABLE EVENT [None]
  - DEVICE RELATED INFECTION [None]
  - INTESTINAL PERFORATION [None]
